FAERS Safety Report 6902068-7 (Version None)
Quarter: 2010Q3

REPORT INFORMATION
  Report Type: 
  Country: None (occurrence: None)
  Receive Date: 20100803
  Receipt Date: 20080417
  Transmission Date: 20110219
  Serious: No
  Sender: FDA-Public Use
  Company Number: US-PFIZER INC-2008015820

PATIENT
  Sex: Female

DRUGS (2)
  1. LYRICA [Suspect]
  2. VIAGRA [Suspect]
     Indication: ORGASMIC SENSATION DECREASED

REACTIONS (5)
  - DIARRHOEA [None]
  - DRUG INEFFECTIVE FOR UNAPPROVED INDICATION [None]
  - FATIGUE [None]
  - OEDEMA PERIPHERAL [None]
  - PAIN IN EXTREMITY [None]
